FAERS Safety Report 7556299-6 (Version None)
Quarter: 2011Q2

REPORT INFORMATION
  Report Type: 
  Country: None (occurrence: None)
  Receive Date: 20110620
  Receipt Date: 20110616
  Transmission Date: 20111010
  Serious: No
  Sender: FDA-Public Use
  Company Number: US-PFIZER INC-2011133623

PATIENT
  Sex: Female
  Weight: 82 kg

DRUGS (7)
  1. ZOCOR [Concomitant]
     Dosage: UNK
     Route: 048
  2. CELEBREX [Suspect]
     Indication: ARTHRITIS
     Dosage: UNK,DAILY
     Route: 048
     Dates: start: 20110501
  3. NEXIUM [Concomitant]
     Dosage: UNK
  4. ACETYLSALICYLIC ACID [Concomitant]
     Dosage: UNK
  5. LASIX [Concomitant]
     Dosage: UNK
     Route: 048
  6. PLAVIX [Concomitant]
     Dosage: UNK
     Route: 048
  7. LISINOPRIL [Concomitant]
     Dosage: UNK

REACTIONS (1)
  - PRURITUS [None]
